FAERS Safety Report 9501546 (Version 1)
Quarter: 2013Q3

REPORT INFORMATION
  Report Type: Spontaneous
  Country: GB (occurrence: DE)
  Receive Date: 20130905
  Receipt Date: 20130905
  Transmission Date: 20140515
  Serious: Yes (Disabling, Other)
  Sender: FDA-Public Use
  Company Number: GB-WATSON-2013-15662

PATIENT
  Age: 52 Year
  Sex: Female

DRUGS (4)
  1. TOPIRAMATE (UNKNOWN) [Suspect]
     Indication: MIGRAINE PROPHYLAXIS
     Dosage: 25 MG, DAILY
     Route: 048
     Dates: start: 20130719
  2. TOPIRAMATE (UNKNOWN) [Suspect]
     Dosage: 100 MG, DAILY
     Route: 048
  3. TOPIRAMATE (UNKNOWN) [Suspect]
     Dosage: 50 MG, DAILY
     Route: 048
  4. PROPRANOLOL [Suspect]
     Indication: PRODUCT USED FOR UNKNOWN INDICATION
     Route: 065

REACTIONS (9)
  - Personality change [Unknown]
  - Depression [Unknown]
  - Anxiety [Unknown]
  - Palpitations [Unknown]
  - Myalgia [Unknown]
  - Paraesthesia [Unknown]
  - Eye pain [Unknown]
  - Malaise [Unknown]
  - Thirst [Unknown]
